FAERS Safety Report 14180850 (Version 5)
Quarter: 2018Q1

REPORT INFORMATION
  Report Type: Spontaneous
  Country: US (occurrence: US)
  Receive Date: 20171110
  Receipt Date: 20180312
  Transmission Date: 20180508
  Serious: Yes (Hospitalization)
  Sender: FDA-Public Use
  Company Number: US-ACTELION-A-NJ2017-162145

PATIENT
  Age: 56 Year
  Sex: Female

DRUGS (4)
  1. REMODULIN [Concomitant]
     Active Substance: TREPROSTINIL
     Dosage: UNK
     Route: 065
  2. TYVASO [Concomitant]
     Active Substance: TREPROSTINIL
  3. OPSUMIT [Suspect]
     Active Substance: MACITENTAN
     Indication: PULMONARY ARTERIAL HYPERTENSION
     Dosage: 10 MG, QD
     Route: 048
     Dates: start: 20151215
  4. METFORMIN [Suspect]
     Active Substance: METFORMIN HYDROCHLORIDE
     Indication: DIABETES MELLITUS
     Route: 065

REACTIONS (9)
  - Diarrhoea [Unknown]
  - Infusion site pruritus [Unknown]
  - Pruritus [Unknown]
  - Fluid retention [Unknown]
  - Scratch [Unknown]
  - Diabetes mellitus inadequate control [Unknown]
  - Catheter site haemorrhage [Unknown]
  - Cough [Unknown]
  - Nausea [Unknown]

NARRATIVE: CASE EVENT DATE: 20171211
